FAERS Safety Report 8588908-7 (Version None)
Quarter: 2012Q3

REPORT INFORMATION
  Report Type: 
  Country: None (occurrence: None)
  Receive Date: 20120813
  Receipt Date: 20120802
  Transmission Date: 20120928
  Serious: Yes (Other)
  Sender: FDA-Public Use
  Company Number: US-BAYER-2012-078466

PATIENT
  Sex: Female

DRUGS (2)
  1. YAZ [Suspect]
     Dosage: UNK
     Route: 048
     Dates: start: 20070101
  2. YASMIN [Suspect]
     Dosage: UNK
     Route: 048
     Dates: start: 20070101

REACTIONS (4)
  - INJURY [None]
  - PAIN [None]
  - GALLBLADDER INJURY [None]
  - FEAR [None]
